FAERS Safety Report 9140886 (Version 4)
Quarter: 2013Q2

REPORT INFORMATION
  Report Type: Report from Study
  Country: JP (occurrence: JP)
  Receive Date: 20130305
  Receipt Date: 20130521
  Transmission Date: 20140414
  Serious: Yes (Other)
  Sender: FDA-Public Use
  Company Number: JP-GILEAD-2013-0071016

PATIENT
  Age: 34 Year
  Sex: Female

DRUGS (11)
  1. AMBRISENTAN [Suspect]
     Indication: SCLEREMA
     Dosage: 7.5 MG, QD
     Route: 048
     Dates: start: 20120412, end: 20120919
  2. AMBRISENTAN [Suspect]
     Dosage: 5 MG, QD
     Route: 048
     Dates: start: 20120405, end: 20120411
  3. ADCIRCA [Concomitant]
     Indication: SCLEREMA
     Dosage: UNK
     Route: 048
  4. BERASUS [Concomitant]
     Indication: SCLEREMA
     Route: 048
     Dates: end: 20120426
  5. PARIET [Concomitant]
     Route: 048
  6. PREDNISOLONE [Concomitant]
     Indication: SCLEREMA
     Route: 048
  7. ALLEGRA [Concomitant]
     Route: 048
     Dates: start: 20120209, end: 20120426
  8. FERROMIA                           /00023516/ [Concomitant]
     Route: 048
     Dates: start: 20120308, end: 20120718
  9. CINAL [Concomitant]
     Route: 048
     Dates: start: 20120308
  10. ONEALFA [Concomitant]
     Route: 048
  11. TRACLEER                           /01587701/ [Concomitant]
     Route: 048

REACTIONS (3)
  - Cough [Recovering/Resolving]
  - Productive cough [Recovering/Resolving]
  - Interstitial lung disease [Not Recovered/Not Resolved]
